FAERS Safety Report 22009176 (Version 3)
Quarter: 2023Q2

REPORT INFORMATION
  Report Type: Report from Study
  Country: US (occurrence: US)
  Receive Date: 20230220
  Receipt Date: 20230406
  Transmission Date: 20230721
  Serious: No
  Sender: FDA-Public Use
  Company Number: US-BIOVITRUM-2022US15238

PATIENT
  Age: 31 Year
  Sex: Female

DRUGS (5)
  1. KINERET [Suspect]
     Active Substance: ANAKINRA
     Indication: Pericardial disease
     Dosage: Q 48 HRS
     Route: 058
     Dates: start: 20220208
  2. KINERET [Suspect]
     Active Substance: ANAKINRA
     Dosage: ONCE A DAY
     Route: 058
     Dates: start: 20220208
  3. KINERET [Suspect]
     Active Substance: ANAKINRA
     Dosage: EVERY 48 HOURS
     Route: 058
     Dates: start: 201904
  4. KINERET [Suspect]
     Active Substance: ANAKINRA
     Dosage: ONCE A DAY
     Route: 058
     Dates: start: 20201102
  5. KINERET [Suspect]
     Active Substance: ANAKINRA
     Dosage: DAILY
     Route: 058
     Dates: start: 20220208

REACTIONS (7)
  - Intentional product misuse [Unknown]
  - COVID-19 [Recovering/Resolving]
  - Malaise [Unknown]
  - Rash [Recovering/Resolving]
  - Pain [Unknown]
  - Product dose omission issue [Unknown]
  - Product use issue [Unknown]

NARRATIVE: CASE EVENT DATE: 20220208
